FAERS Safety Report 24300472 (Version 1)
Quarter: 2024Q3

REPORT INFORMATION
  Report Type: Spontaneous
  Country: US (occurrence: US)
  Receive Date: 20240910
  Receipt Date: 20240910
  Transmission Date: 20241017
  Serious: No
  Sender: ASTELLAS
  Company Number: US-ASTELLAS-2024-AER-002449

PATIENT
  Age: 68 Year
  Sex: Female

DRUGS (1)
  1. VEOZAH [Suspect]
     Active Substance: FEZOLINETANT
     Indication: Menopausal symptoms
     Route: 065
     Dates: start: 202406

REACTIONS (6)
  - Abdominal discomfort [Unknown]
  - Malaise [Unknown]
  - Urinary tract infection [Unknown]
  - Abdominal pain [Unknown]
  - Flatulence [Unknown]
  - Condition aggravated [Unknown]
